FAERS Safety Report 9807412 (Version 4)
Quarter: 2014Q1

REPORT INFORMATION
  Report Type: Spontaneous
  Country: US (occurrence: US)
  Receive Date: 20140110
  Receipt Date: 20140213
  Transmission Date: 20141002
  Serious: Yes (Hospitalization)
  Sender: FDA-Public Use
  Company Number: US-BEH-2012031162

PATIENT
  Age: 54 Year
  Sex: Female
  Weight: 12 kg

DRUGS (61)
  1. PRIVIGEN [Suspect]
     Indication: HYPOGAMMAGLOBULINAEMIA
     Dosage: 5 MG VIAL; INFUSE 4 HOURS
     Route: 042
     Dates: start: 20080620
  2. PRIVIGEN [Suspect]
     Dosage: 35 G EVERY 2 TO 3 WEEKS
     Route: 042
     Dates: start: 20120112
  3. PRIVIGEN [Suspect]
     Dosage: EVERY 2-3 WEEKS; 5-6 HOURS
     Route: 042
     Dates: start: 20120126
  4. PRIVIGEN [Suspect]
     Dosage: EVERY 2-3 WEEKS; 4-6 HOURS
     Route: 042
     Dates: start: 20120222
  5. PRIVIGEN [Suspect]
     Dosage: 5 GM VIAL, 35 GM (350 ML) EVERY 2 TO 3 WEEKS, 4 TO 6 HOURS
     Route: 042
     Dates: start: 20120425, end: 20120425
  6. PRIVIGEN [Suspect]
     Dosage: 5 GM VIAL, 35 GM (350 ML) EVERY 2 TO 3 WEEKS, 4 TO 6 HOURS
     Route: 042
     Dates: start: 20120507, end: 20120507
  7. PRIVIGEN [Suspect]
     Dosage: 5 GM VIAL, 35 GM (350 ML) EVERY 2 TO 3 WEEKS, 4 TO 6 HOURS
     Route: 042
     Dates: start: 20120830, end: 20120830
  8. PRIVIGEN [Suspect]
     Dosage: EVERY 2-3 WEEKS OVER 4-6 HOURS
     Route: 042
  9. PRIVIGEN [Suspect]
     Dosage: EVERY 2-3 WEEKS; OVER 4-6 HOURS
     Route: 042
     Dates: start: 20130612
  10. PRIVIGEN [Suspect]
     Dosage: 5 GM VIAL; 35 GM EVERY 2-3 WEEKS OVER 4-6 HOURS
     Route: 042
  11. PRIVIGEN [Suspect]
     Dosage: 5 GM VIAL; OVER 4-6 HOURS
     Route: 042
  12. PRIVIGEN [Suspect]
     Dosage: OVER 4-6 HOURS, ONE TIME EVERY 2-3 WEEKS
     Route: 042
     Dates: start: 20140109, end: 20140109
  13. PRIVIGEN [Suspect]
     Dosage: 5 GM VIAL; 38 GM EVERY 2-3 WEEKS; INFUSE OVER 4-6 HOURS
     Route: 042
  14. CYMBALTA [Concomitant]
  15. DEXAMETHASONE [Concomitant]
  16. CARBAMAZEPINE [Concomitant]
  17. CLONAZEPAM [Concomitant]
  18. ZOFRAN [Concomitant]
  19. LAMICTAL [Concomitant]
  20. SYMBICORT [Concomitant]
  21. RHINOCORT AQUA SPRAY [Concomitant]
  22. SEROQUEL [Concomitant]
  23. IPRATROPIUM BROMIDE [Concomitant]
  24. BENICAR HCT [Concomitant]
  25. ALBUTEROL [Concomitant]
  26. TOPAMAX [Concomitant]
  27. PHENERGAN [Concomitant]
  28. FIORICET [Concomitant]
  29. PRILOSEC [Concomitant]
  30. ACETAMINOPHEN WITH CODEINE [Concomitant]
  31. CODEINE [Concomitant]
  32. LOSARTAN POTASSIUM [Concomitant]
  33. ASPIRIN [Concomitant]
  34. NORTRIPTYLINE [Concomitant]
  35. ZANAFLEX [Concomitant]
  36. ZAFIRLUKAST [Concomitant]
  37. PULMICORT [Concomitant]
  38. LOVASTATIN [Concomitant]
  39. CHERATUSSIN AC [Concomitant]
  40. ACETAMINOPHEN [Concomitant]
  41. DIPHENHYDRAMINE [Concomitant]
     Indication: PREMEDICATION
  42. SODIUM CHLORIDE [Concomitant]
  43. NORMAL SALINE [Concomitant]
  44. LOSARTAN [Concomitant]
  45. TREXIMET [Concomitant]
  46. CHERATUSSIN [Concomitant]
  47. DEXTROS 5% [Concomitant]
  48. EPI-PEN [Concomitant]
     Indication: PREMEDICATION
  49. OXYGEN [Concomitant]
  50. ACETA [Concomitant]
  51. VICODIN ES [Concomitant]
  52. PHENERGAN [Concomitant]
  53. DEXAMETHASONE [Concomitant]
  54. TREXIMET [Concomitant]
  55. COZAAR [Concomitant]
  56. LOPRESSOR [Concomitant]
  57. VICODIN ES [Concomitant]
  58. ACCOLATE [Concomitant]
  59. MEVACOR [Concomitant]
  60. CARDIZEM [Concomitant]
  61. NITROSTAT [Concomitant]

REACTIONS (22)
  - Pneumonia [Unknown]
  - Pain [Unknown]
  - Headache [Unknown]
  - Headache [Unknown]
  - Headache [Unknown]
  - Nausea [Unknown]
  - Headache [Recovered/Resolved]
  - Nausea [Recovered/Resolved]
  - Headache [Recovered/Resolved]
  - Headache [Recovered/Resolved]
  - Fatigue [Unknown]
  - Fall [Unknown]
  - Fatigue [Unknown]
  - Fall [Unknown]
  - Headache [Not Recovered/Not Resolved]
  - Nausea [Not Recovered/Not Resolved]
  - Headache [Recovered/Resolved]
  - Sinusitis [Unknown]
  - Ear infection [Unknown]
  - Eye infection [Unknown]
  - Rhinitis [Unknown]
  - Pharyngitis [Unknown]
